FAERS Safety Report 18840350 (Version 1)
Quarter: 2021Q1

REPORT INFORMATION
  Report Type: Spontaneous
  Country: US (occurrence: US)
  Receive Date: 20210204
  Receipt Date: 20210204
  Transmission Date: 20210419
  Serious: Yes (Death, Other)
  Sender: FDA-Public Use
  Company Number: US-ALXN-A202101553

PATIENT
  Age: 87 Year
  Sex: Female

DRUGS (1)
  1. SOLIRIS [Suspect]
     Active Substance: ECULIZUMAB
     Indication: MYASTHENIA GRAVIS
     Dosage: UNK
     Route: 065
     Dates: start: 201808, end: 202002

REACTIONS (6)
  - Dysphagia [Unknown]
  - Muscular weakness [Unknown]
  - General physical health deterioration [Unknown]
  - Pneumonia aspiration [Unknown]
  - Asthenia [Unknown]
  - Death [Fatal]
